FAERS Safety Report 10341859 (Version 1)
Quarter: 2014Q3

REPORT INFORMATION
  Report Type: Spontaneous
  Country: None (occurrence: None)
  Receive Date: 20140722
  Receipt Date: 20140722
  Transmission Date: 20150326
  Serious: Yes (Hospitalization)
  Sender: FDA-Public Use
  Company Number: 2014070035

PATIENT

DRUGS (1)
  1. TALOXA [Suspect]
     Active Substance: FELBAMATE
     Dates: start: 201407

REACTIONS (1)
  - Adverse event [None]

NARRATIVE: CASE EVENT DATE: 201407
